FAERS Safety Report 9311757 (Version 1)
Quarter: 2013Q2

REPORT INFORMATION
  Report Type: Spontaneous
  Country: US (occurrence: US)
  Receive Date: 20130528
  Receipt Date: 20130528
  Transmission Date: 20140414
  Serious: Yes (Hospitalization)
  Sender: FDA-Public Use
  Company Number: US-BAYER-2013-065134

PATIENT
  Age: 41 Year
  Sex: Female
  Weight: 74.83 kg

DRUGS (18)
  1. YAZ [Suspect]
     Dosage: UNK
  2. GIANVI [Suspect]
  3. INSULIN [Concomitant]
  4. COREG [Concomitant]
  5. ASPIRIN [Concomitant]
  6. LIPITOR [Concomitant]
  7. JANUMET [Concomitant]
  8. PENICILLIN VK [Concomitant]
  9. IMDUR [Concomitant]
  10. DILTIAZEM [Concomitant]
  11. HUMALOG [Concomitant]
  12. TYLENOL WITH CODEINE [Concomitant]
  13. ARGININE [Concomitant]
  14. VITAMIN D [Concomitant]
  15. VITAMIN B12 [Concomitant]
  16. ENALAPRIL [Concomitant]
  17. MULTIVITAMIN [Concomitant]
  18. NITROGLYCERIN [Concomitant]

REACTIONS (1)
  - Myocardial infarction [None]
